FAERS Safety Report 12564413 (Version 1)
Quarter: 2016Q3

REPORT INFORMATION
  Report Type: Spontaneous
  Country: US (occurrence: None)
  Receive Date: 20160715
  Receipt Date: 20160715
  Transmission Date: 20161109
  Serious: Yes (Other)
  Sender: FDA-Public Use
  Company Number: None

PATIENT
  Age: 57 Year
  Sex: Female
  Weight: 57.61 kg

DRUGS (7)
  1. D-AMPHETAMINE SALT COMBO 20MG TA, 20 MG TEVA [Suspect]
     Active Substance: AMPHETAMINE ASPARTATE\AMPHETAMINE SULFATE\DEXTROAMPHETAMINE SACCHARATE\DEXTROAMPHETAMINE SULFATE
     Indication: ATTENTION DEFICIT/HYPERACTIVITY DISORDER
     Route: 048
     Dates: start: 20160628, end: 20160706
  2. LASIX [Concomitant]
     Active Substance: FUROSEMIDE
  3. DOXYPEN [Concomitant]
  4. VITAMIN C [Concomitant]
     Active Substance: ASCORBIC ACID
  5. MULTI VITAMIN [Concomitant]
     Active Substance: VITAMINS
  6. TENORMIN [Concomitant]
     Active Substance: ATENOLOL
  7. MENAIRS [Concomitant]

REACTIONS (4)
  - Drug ineffective [None]
  - Nausea [None]
  - Disturbance in attention [None]
  - Product quality issue [None]

NARRATIVE: CASE EVENT DATE: 20160628
